FAERS Safety Report 24968988 (Version 1)
Quarter: 2025Q1

REPORT INFORMATION
  Report Type: Report from Study
  Country: US (occurrence: US)
  Receive Date: 20250214
  Receipt Date: 20250214
  Transmission Date: 20250409
  Serious: Yes (Other)
  Sender: AMNEAL
  Company Number: US-AMNEAL PHARMACEUTICALS-2024-AMRX-04063

PATIENT
  Sex: Male

DRUGS (2)
  1. CARBIDOPA\LEVODOPA [Suspect]
     Active Substance: CARBIDOPA\LEVODOPA
     Indication: Product used for unknown indication
     Dosage: 03 CAPSULES, 4X/DAY AT 7AM, 11AM, 3PM AND 7PM  SOMETIMES PATIENT WAS TAKING 02 CAPSULES 4X/DAY AND S
     Route: 048
  2. CARBIDOPA\LEVODOPA [Suspect]
     Active Substance: CARBIDOPA\LEVODOPA
     Dosage: 03 CAPSULES, 4 /DAY
     Route: 048

REACTIONS (3)
  - Hallucination [Unknown]
  - Somnolence [Unknown]
  - Treatment noncompliance [Unknown]
